FAERS Safety Report 19569863 (Version 2)
Quarter: 2021Q3

REPORT INFORMATION
  Report Type: Spontaneous
  Country: US (occurrence: US)
  Receive Date: 20210716
  Receipt Date: 20210721
  Transmission Date: 20211014
  Serious: Yes (Other)
  Sender: FDA-Public Use
  Company Number: US-SA-2021SA226627

PATIENT
  Age: 75 Year
  Sex: Male

DRUGS (2)
  1. LANTUS [Concomitant]
     Active Substance: INSULIN GLARGINE
     Dosage: UNK
  2. APIDRA SOLOSTAR [Suspect]
     Active Substance: INSULIN GLULISINE
     Dosage: 5 UNITS MEALTIMES
     Route: 065
     Dates: start: 2009

REACTIONS (6)
  - Blood glucose increased [Unknown]
  - Injection site bruising [Unknown]
  - Intentional product use issue [Unknown]
  - Prostate cancer [Unknown]
  - Therapeutic response decreased [Unknown]
  - Product storage error [Unknown]

NARRATIVE: CASE EVENT DATE: 201305
